FAERS Safety Report 9348704 (Version 1)
Quarter: 2013Q2

REPORT INFORMATION
  Report Type: Spontaneous
  Country: US (occurrence: US)
  Receive Date: 20130614
  Receipt Date: 20130614
  Transmission Date: 20140414
  Serious: Yes (Death)
  Sender: FDA-Public Use
  Company Number: US-ASTRAZENECA-2013SE42069

PATIENT
  Age: 74 Year
  Sex: Female
  Weight: 48.1 kg

DRUGS (2)
  1. SYMBICORT [Suspect]
     Indication: CHRONIC OBSTRUCTIVE PULMONARY DISEASE
     Dosage: 160/4.5 MCG, UNKNOWN
     Route: 055
  2. MANY OTHER MEDICATIONS [Concomitant]

REACTIONS (1)
  - Death [Fatal]
